FAERS Safety Report 10904815 (Version 1)
Quarter: 2015Q1

REPORT INFORMATION
  Report Type: Spontaneous
  Country: US (occurrence: None)
  Receive Date: 20150107
  Receipt Date: 20150107
  Transmission Date: 20150721
  Serious: No
  Sender: FDA-Public Use
  Company Number: 2014TUS013872

PATIENT
  Age: 47 Year
  Sex: Female
  Weight: 108.8 kg

DRUGS (6)
  1. METFORMIN [Concomitant]
     Active Substance: METFORMIN HYDROCHLORIDE
  2. CONTRAVE [Suspect]
     Active Substance: BUPROPION HYDROCHLORIDE\NALTREXONE HYDROCHLORIDE
     Indication: OBESITY
     Dosage: ONE TAB QAM, QD, ORAL
     Route: 048
     Dates: start: 20141129, end: 20141205
  3. CARVEDILOL. [Concomitant]
     Active Substance: CARVEDILOL
  4. DULOXETINE [Concomitant]
     Active Substance: DULOXETINE
  5. ARMODAFINIL. [Concomitant]
     Active Substance: ARMODAFINIL
  6. FUROSEMIDE. [Concomitant]
     Active Substance: FUROSEMIDE

REACTIONS (6)
  - Abdominal pain upper [None]
  - Hallucination, visual [None]
  - Nausea [None]
  - Dizziness [None]
  - Night sweats [None]
  - Fatigue [None]
